FAERS Safety Report 10977530 (Version 2)
Quarter: 2015Q2

REPORT INFORMATION
  Report Type: Spontaneous
  Country: FR (occurrence: FR)
  Receive Date: 20150402
  Receipt Date: 20150406
  Transmission Date: 20150821
  Serious: Yes (Other)
  Sender: FDA-Public Use
  Company Number: FR-JNJFOC-20150314994

PATIENT
  Age: 7 Decade
  Sex: Female

DRUGS (2)
  1. VOLTAREN [Concomitant]
     Active Substance: DICLOFENAC SODIUM
     Route: 065
  2. CAELYX [Suspect]
     Active Substance: DOXORUBICIN HYDROCHLORIDE
     Indication: BREAST CANCER
     Dosage: RECEIVED 1 COURSE, AT 80% NORMAL DOSAGE I.E AROUND 40MG/M?
     Route: 042
     Dates: start: 201502

REACTIONS (3)
  - Hepatocellular injury [Recovering/Resolving]
  - Nausea [Recovering/Resolving]
  - Cholestasis [Recovering/Resolving]
